FAERS Safety Report 14148456 (Version 1)
Quarter: 2017Q4

REPORT INFORMATION
  Report Type: Spontaneous
  Country: GB (occurrence: GB)
  Receive Date: 20171031
  Receipt Date: 20171031
  Transmission Date: 20180321
  Serious: Yes (Disabling)
  Sender: FDA-Public Use
  Company Number: None

PATIENT
  Sex: Male
  Weight: 65 kg

DRUGS (4)
  1. SERTRALINE [Suspect]
     Active Substance: SERTRALINE HYDROCHLORIDE
     Indication: DEPRESSION
     Dosage: ?          QUANTITY:3 TABLET(S);OTHER ROUTE:BY MOUTH?
     Route: 048
  2. ZINC. [Concomitant]
     Active Substance: ZINC
  3. SERTRALINE [Suspect]
     Active Substance: SERTRALINE HYDROCHLORIDE
     Indication: ANXIETY
     Dosage: ?          QUANTITY:3 TABLET(S);OTHER ROUTE:BY MOUTH?
     Route: 048
  4. MULTI VITAMIN [Concomitant]
     Active Substance: VITAMINS

REACTIONS (8)
  - Insomnia [None]
  - Semen volume decreased [None]
  - Erectile dysfunction [None]
  - Tinnitus [None]
  - Sexual dysfunction [None]
  - Cognitive disorder [None]
  - Memory impairment [None]
  - Loss of libido [None]

NARRATIVE: CASE EVENT DATE: 20161012
